FAERS Safety Report 4273510-8 (Version None)
Quarter: 2004Q1

REPORT INFORMATION
  Report Type: 
  Country: None (occurrence: None)
  Receive Date: 20040119
  Receipt Date: 20011022
  Transmission Date: 20041129
  Serious: Yes (Hospitalization)
  Sender: FDA-Public Use
  Company Number: DE-GLAXOSMITHKLINE-D0022164A

PATIENT
  Age: 3 Year
  Sex: Male
  Weight: 12.4 kg

DRUGS (4)
  1. LAMICTAL [Suspect]
     Indication: CONVULSION
     Dosage: 7.5MG TWICE PER DAY
     Route: 048
     Dates: start: 20010910, end: 20011013
  2. AMOXYPEN [Suspect]
     Dosage: 500MG THREE TIMES PER DAY
     Route: 048
     Dates: start: 20011002
  3. ORFIRIL LONG [Concomitant]
     Indication: CONVULSION
     Dosage: 150MG THREE TIMES PER DAY
     Route: 048
     Dates: start: 20010101
  4. FERRO SANOL [Concomitant]
     Indication: ANAEMIA
     Dosage: 22DROP TWICE PER DAY
     Route: 048

REACTIONS (18)
  - BRONCHITIS [None]
  - BRONCHOPNEUMONIA [None]
  - C-REACTIVE PROTEIN INCREASED [None]
  - CHEILITIS [None]
  - COUGH [None]
  - DIARRHOEA [None]
  - ERYTHEMA [None]
  - ERYTHEMA MULTIFORME [None]
  - EXANTHEM [None]
  - EYE REDNESS [None]
  - GENITAL ULCERATION [None]
  - LEUKOCYTOSIS [None]
  - MUCOSAL EROSION [None]
  - PHARYNGEAL ERYTHEMA [None]
  - PHARYNGITIS [None]
  - PSEUDOCROUP [None]
  - PYREXIA [None]
  - STEVENS-JOHNSON SYNDROME [None]
